FAERS Safety Report 6069104-4 (Version None)
Quarter: 2009Q1

REPORT INFORMATION
  Report Type: 
  Country: None (occurrence: None)
  Receive Date: 20090203
  Receipt Date: 20090119
  Transmission Date: 20090719
  Serious: Yes (Hospitalization)
  Sender: FDA-Public Use
  Company Number: DSJ-2008-15141

PATIENT
  Age: 78 Year
  Sex: Male
  Weight: 59 kg

DRUGS (17)
  1. OLMESARTAN MEDOXOMIL [Suspect]
     Indication: ESSENTIAL HYPERTENSION
     Dosage: 20 MG;10MG (10 MG, 1 IN 1 D) PER ORAL
     Route: 048
     Dates: start: 20060615, end: 20070108
  2. OLMESARTAN MEDOXOMIL [Suspect]
     Indication: ESSENTIAL HYPERTENSION
     Dosage: 20 MG;10MG (10 MG, 1 IN 1 D) PER ORAL
     Route: 048
     Dates: start: 20070109, end: 20081112
  3. CALBLOCK (AZELNIDIPINE) (TABLET) (AZELNIDIPINE) [Suspect]
     Dosage: 8MG ;16 MG (16 MG, 1 IN 1 D), PER ORAL
     Route: 048
     Dates: start: 20060727, end: 20070619
  4. CALBLOCK (AZELNIDIPINE) (TABLET) (AZELNIDIPINE) [Suspect]
     Dosage: 8MG ;16 MG (16 MG, 1 IN 1 D), PER ORAL
     Route: 048
     Dates: start: 20070620, end: 20081013
  5. LASIX [Suspect]
     Dosage: 20 MG;40 MG (40 MG, 1 IN 1 D), PER ORAL
     Route: 048
     Dates: end: 20080107
  6. LASIX [Suspect]
     Dosage: 20 MG;40 MG (40 MG, 1 IN 1 D), PER ORAL
     Route: 048
     Dates: start: 20080108, end: 20081112
  7. FLUITRAN (TRICHLORMETHIAZIDE) (TRICHLORMETHIAZIDE) [Suspect]
     Dosage: 1 MG (1 MG, 1 IN 1 D) PER ORAL
     Dates: start: 20060518, end: 20060629
  8. CARDENALIN (DOXAZOSIN MESILATE) (DOXAZOSIN MESILATE) [Suspect]
     Dosage: 2 MG (2 MG, 1 IN 1 D), PER ORAL
     Route: 048
     Dates: start: 20080703, end: 20080907
  9. CARDENALIN (DOXAZOSIN MESILATE) (DOXAZOSIN MESILATE) [Suspect]
     Dosage: 2 MG (2 MG, 1 IN 1 D), PER ORAL
     Route: 048
     Dates: start: 20081002, end: 20081112
  10. LIPITOR [Concomitant]
  11. GLUCOBAY (ACARBOSE) (ACARBOSE) [Concomitant]
  12. LONGES (LISINOPRIL) (LISINOPRIL) [Concomitant]
  13. ALDACTONE-A (SPIRONOLACTONE) (SPIRONOLACTONE) [Concomitant]
  14. INGREDIENT UNKNOWN [Concomitant]
  15. ASPIRIN [Concomitant]
  16. MEVALOTIN (PRAVASTATIN SODIUM) (PRAVASTATIN SODIUM) [Concomitant]
  17. ALLOPURINOL [Concomitant]

REACTIONS (6)
  - ATRIAL FIBRILLATION [None]
  - BLOOD URIC ACID INCREASED [None]
  - HYPOTENSION [None]
  - IRON DEFICIENCY ANAEMIA [None]
  - RENAL IMPAIRMENT [None]
  - TACHYCARDIA [None]
